FAERS Safety Report 8058890-X (Version None)
Quarter: 2012Q1

REPORT INFORMATION
  Report Type: 
  Country: None (occurrence: None)
  Receive Date: 20120120
  Receipt Date: 20111014
  Transmission Date: 20120608
  Serious: Yes (Other)
  Sender: FDA-Public Use
  Company Number: US-BRISTOL-MYERS SQUIBB COMPANY-16163768

PATIENT

DRUGS (1)
  1. YERVOY [Suspect]
     Dosage: 1 DOSE OF YERVOY.

REACTIONS (1)
  - DIARRHOEA [None]
